FAERS Safety Report 6253021-0 (Version None)
Quarter: 2009Q2

REPORT INFORMATION
  Report Type: 
  Country: None (occurrence: None)
  Receive Date: 20090629
  Receipt Date: 20090623
  Transmission Date: 20091009
  Serious: Yes (Other)
  Sender: FDA-Public Use
  Company Number: 1000001430

PATIENT
  Age: 42 Year
  Sex: Male
  Weight: 102.0593 kg

DRUGS (10)
  1. LEXAPRO [Suspect]
     Indication: DEPRESSION
     Dosage: 10 MG (10 MG, 1 IN 1 D),ORAL
     Route: 048
     Dates: start: 20030101
  2. LEXAPRO [Suspect]
     Indication: DEPRESSION
     Dosage: 30 MG (30 MG, 1 IN 1 D),ORAL
     Route: 048
  3. LEXAPRO [Suspect]
     Indication: DEPRESSION
     Dosage: 10 MG (10 MG, 1 IN 1 D), ORAL
     Route: 048
     Dates: end: 20080901
  4. WELLBUTRIN [Suspect]
     Indication: DEPRESSION
     Dosage: 5 MG (5 MG, 1 IN 1 D), ORAL
     Route: 048
     Dates: start: 20080901
  5. WELLBUTRIN [Concomitant]
  6. ZOCOR [Concomitant]
  7. XANAX [Concomitant]
  8. GABAPENTIN [Concomitant]
  9. TOPAMAX [Concomitant]
  10. INDOMETHACIN [Concomitant]

REACTIONS (11)
  - BLEPHARITIS [None]
  - DRY EYE [None]
  - EYE PAIN [None]
  - HEADACHE [None]
  - MACULOPATHY [None]
  - OVERDOSE [None]
  - RETINAL DISORDER [None]
  - VISION BLURRED [None]
  - VISUAL ACUITY REDUCED [None]
  - VITREOUS DISORDER [None]
  - WEIGHT INCREASED [None]
